FAERS Safety Report 6585591-7 (Version None)
Quarter: 2010Q1

REPORT INFORMATION
  Report Type: 
  Country: None (occurrence: None)
  Receive Date: 20100217
  Receipt Date: 20100208
  Transmission Date: 20100710
  Serious: Yes (Hospitalization)
  Sender: FDA-Public Use
  Company Number: IT-ELI_LILLY_AND_COMPANY-IT200912006294

PATIENT
  Sex: Female

DRUGS (3)
  1. BYETTA [Suspect]
     Indication: INSULIN-REQUIRING TYPE 2 DIABETES MELLITUS
     Dosage: 20 UG, DAILY (1/D)
     Route: 058
     Dates: start: 20081007, end: 20091221
  2. GLICLAZIDE [Concomitant]
     Dosage: 60 MG, UNK
     Route: 048
     Dates: start: 20090202, end: 20091221
  3. METFORMIN HCL [Concomitant]
     Dosage: 2000 MG, UNK
     Route: 048
     Dates: start: 20060101, end: 20091221

REACTIONS (2)
  - PANCREATITIS [None]
  - RENAL FAILURE ACUTE [None]
